FAERS Safety Report 12000582 (Version 1)
Quarter: 2016Q1

REPORT INFORMATION
  Report Type: Spontaneous
  Country: US (occurrence: None)
  Receive Date: 20160203
  Receipt Date: 20160203
  Transmission Date: 20160526
  Serious: Yes (Death)
  Sender: FDA-Public Use
  Company Number: None

PATIENT
  Age: 64 Year
  Sex: Male
  Weight: 146 kg

DRUGS (3)
  1. NICARDIPINE INFUSION [Concomitant]
  2. ACTIVASE [Suspect]
     Active Substance: ALTEPLASE
     Indication: ISCHAEMIC STROKE
     Route: 042
     Dates: start: 20160131
  3. LABETALOL [Concomitant]
     Active Substance: LABETALOL\LABETALOL HYDROCHLORIDE

REACTIONS (8)
  - Eyelid oedema [None]
  - Dyspnoea [None]
  - Mouth haemorrhage [None]
  - Bradycardia [None]
  - Pharyngeal oedema [None]
  - Tongue oedema [None]
  - Hypoxia [None]
  - Pulseless electrical activity [None]

NARRATIVE: CASE EVENT DATE: 20160131
